FAERS Safety Report 8551365-0 (Version None)
Quarter: 2012Q3

REPORT INFORMATION
  Report Type: 
  Country: None (occurrence: None)
  Receive Date: 20120730
  Receipt Date: 20120725
  Transmission Date: 20120928
  Serious: Yes (Hospitalization, Other)
  Sender: FDA-Public Use
  Company Number: US-B.I. PHARMACEUTICALS,INC./RIDGEFIELD-2012-BP-16580BP

PATIENT
  Sex: Male

DRUGS (4)
  1. AVODART [Concomitant]
  2. ASPIRIN [Concomitant]
  3. PLAVIX [Concomitant]
  4. SPIRIVA [Suspect]
     Indication: CHRONIC OBSTRUCTIVE PULMONARY DISEASE
     Dosage: 18 MCG
     Route: 055
     Dates: start: 20100101, end: 20120720

REACTIONS (1)
  - COLON CANCER [None]
